FAERS Safety Report 5275551-0 (Version None)
Quarter: 2007Q1

REPORT INFORMATION
  Report Type: 
  Country: None (occurrence: None)
  Receive Date: 20061213
  Receipt Date: 20051003
  Transmission Date: 20070707
  Serious: Yes (Hospitalization)
  Sender: FDA-Public Use
  Company Number: 2005UW14814

PATIENT
  Age: 55 Year
  Sex: Male
  Weight: 112.49 kg

DRUGS (3)
  1. SEROQUEL [Suspect]
     Indication: BIPOLAR DISORDER
  2. LITHIUM CARBONATE [Suspect]
  3. LIBRIUM ^HOFFMAN^ [Concomitant]

REACTIONS (1)
  - HALLUCINATION [None]
